FAERS Safety Report 8270765-X (Version None)
Quarter: 2012Q2

REPORT INFORMATION
  Report Type: 
  Country: None (occurrence: None)
  Receive Date: 20120406
  Receipt Date: 20120326
  Transmission Date: 20120825
  Serious: Yes (Life-Threatening)
  Sender: FDA-Public Use
  Company Number: DSM-2012-00374

PATIENT
  Age: 54 Year
  Sex: Male

DRUGS (3)
  1. AMLODIPINE [Concomitant]
  2. ATORVASTATIN (ATORVASTATIN) (ATORVASTATIN) [Concomitant]
  3. OLMESARTAN MEDOXOMIL [Suspect]
     Indication: PRODUCT USED FOR UNKNOWN INDICATION
     Dosage: ORAL
     Route: 048
     Dates: start: 20050101

REACTIONS (1)
  - MALIGNANT MELANOMA [None]
